FAERS Safety Report 9508751 (Version 1)
Quarter: 2013Q1

REPORT INFORMATION
  Report Type: Spontaneous
  Country: US (occurrence: None)
  Receive Date: 20130305
  Receipt Date: 20130305
  Transmission Date: 20140127
  Serious: Yes (Other)
  Sender: FDA-Public Use
  Company Number: 163-21880-12081888

PATIENT
  Age: 62 Year
  Sex: Female

DRUGS (5)
  1. REVLIMID [Suspect]
     Indication: PLASMA CELL MYELOMA
     Route: 048
     Dates: start: 20120625
  2. ASPIRIN (ACETYLSALICYLIC ACIDE) (UNKNOWN) [Concomitant]
  3. CALCIUM + VITAMIN D (LEKOVIT CA) (UNKNOWN) [Concomitant]
  4. MULTIVITAMINS (MULTIVITAMINS) (UNKNOWN) [Concomitant]
  5. VITAMIN D (ERGOCALCIFEROL) (UNKNOWN) [Concomitant]

REACTIONS (2)
  - Weight increased [None]
  - Blood pressure increased [None]
